FAERS Safety Report 6638947-8 (Version None)
Quarter: 2010Q1

REPORT INFORMATION
  Report Type: 
  Country: None (occurrence: None)
  Receive Date: 20100317
  Receipt Date: 20100310
  Transmission Date: 20100710
  Serious: Yes (Other)
  Sender: FDA-Public Use
  Company Number: AU-NAPPMUNDI-GBR-2010-0006253

PATIENT
  Age: 53 Year
  Sex: Male

DRUGS (5)
  1. MORPHINE SULFATE [Suspect]
     Indication: ANALGESIC THERAPY
     Dosage: 450 MG, DAILY
     Route: 048
  2. OXYCODONE HCL [Suspect]
  3. FLUPHENAZINE [Concomitant]
  4. INDOMETHACIN [Concomitant]
  5. TEMAZEPAM [Concomitant]

REACTIONS (1)
  - MYOCLONUS [None]
